FAERS Safety Report 6178099-4 (Version None)
Quarter: 2009Q2

REPORT INFORMATION
  Report Type: 
  Country: None (occurrence: None)
  Receive Date: 20090504
  Receipt Date: 20090205
  Transmission Date: 20091009
  Serious: No
  Sender: FDA-Public Use
  Company Number: US-ALEXION-A200900040

PATIENT
  Sex: Female

DRUGS (5)
  1. SOLIRIS [Suspect]
     Indication: PAROXYSMAL NOCTURNAL HAEMOGLOBINURIA
     Dosage: 600 MG, UNK
     Route: 042
     Dates: start: 20071106
  2. SOLIRIS [Suspect]
     Dosage: 900 MG, Q2W
     Route: 042
     Dates: start: 20071204
  3. EXJADE [Concomitant]
     Dosage: 125 MG, QD
     Route: 048
  4. CYCLOSPORINE [Concomitant]
     Dosage: 25 MG, BID
     Route: 048
  5. EPOGEN [Concomitant]
     Dosage: 1200 UT, Q2W

REACTIONS (5)
  - DIARRHOEA [None]
  - FATIGUE [None]
  - GASTRIC DISORDER [None]
  - NAUSEA [None]
  - VOMITING [None]
